FAERS Safety Report 12327077 (Version 1)
Quarter: 2016Q2

REPORT INFORMATION
  Report Type: Spontaneous
  Country: US (occurrence: None)
  Receive Date: 20160502
  Receipt Date: 20160502
  Transmission Date: 20160815
  Serious: Yes (Other)
  Sender: FDA-Public Use
  Company Number: None

PATIENT
  Age: 41 Year
  Sex: Female
  Weight: 52.16 kg

DRUGS (7)
  1. ALBUTEROL. [Concomitant]
     Active Substance: ALBUTEROL
  2. TRI-LO-SPRINTEC [Suspect]
     Active Substance: ETHINYL ESTRADIOL\NORGESTIMATE
     Indication: CONTRACEPTION
     Dosage: 28 TABLET (S)  IN THE MORNING BY MOUTH
     Route: 048
     Dates: start: 20160311, end: 20160424
  3. MONTELUKAST SODIUM. [Concomitant]
     Active Substance: MONTELUKAST SODIUM
  4. TRI-LO-SPRINTEC [Suspect]
     Active Substance: ETHINYL ESTRADIOL\NORGESTIMATE
     Indication: ACNE
     Dosage: 28 TABLET (S)  IN THE MORNING BY MOUTH
     Route: 048
     Dates: start: 20160311, end: 20160424
  5. ADAPALENE. [Concomitant]
     Active Substance: ADAPALENE
  6. ONE DAILY VITAMIN [Concomitant]
  7. CENTRUM [Concomitant]
     Active Substance: VITAMINS

REACTIONS (10)
  - Nausea [None]
  - Abdominal distension [None]
  - Acne [None]
  - Vomiting [None]
  - Mood swings [None]
  - Fatigue [None]
  - Depression [None]
  - Product substitution issue [None]
  - Muscle spasms [None]
  - Headache [None]

NARRATIVE: CASE EVENT DATE: 20160315
